FAERS Safety Report 13466761 (Version 1)
Quarter: 2017Q2

REPORT INFORMATION
  Report Type: Spontaneous
  Country: GB (occurrence: GB)
  Receive Date: 20170421
  Receipt Date: 20170421
  Transmission Date: 20170830
  Serious: Yes (Hospitalization, Disabling)
  Sender: FDA-Public Use
  Company Number: GB-HETERO LABS LTD-1065627

PATIENT
  Age: 10 Year
  Sex: Female
  Weight: 61.25 kg

DRUGS (1)
  1. LEVETIRACETAM. [Suspect]
     Active Substance: LEVETIRACETAM
     Indication: PARTIAL SEIZURES
     Route: 048
     Dates: start: 20161114, end: 20161120

REACTIONS (7)
  - Anhedonia [Unknown]
  - Abnormal behaviour [Unknown]
  - Apathy [Unknown]
  - Personality change [Unknown]
  - Intentional self-injury [Unknown]
  - Suicidal ideation [Unknown]
  - Psychotic disorder [Unknown]
